FAERS Safety Report 6190467-3 (Version None)
Quarter: 2009Q2

REPORT INFORMATION
  Report Type: 
  Country: None (occurrence: None)
  Receive Date: 20090514
  Receipt Date: 20090513
  Transmission Date: 20091009
  Serious: Yes (Death)
  Sender: FDA-Public Use
  Company Number: PHHY2009IN01806

PATIENT
  Age: 9 Year
  Sex: Male

DRUGS (1)
  1. ASUNRA [Suspect]
     Dosage: 100 + 400 MG DAILY

REACTIONS (2)
  - IRON OVERLOAD [None]
  - SPLENOMEGALY [None]
